FAERS Safety Report 11815991 (Version 1)
Quarter: 2015Q4

REPORT INFORMATION
  Report Type: Spontaneous
  Country: FR (occurrence: FR)
  Receive Date: 20151209
  Receipt Date: 20151209
  Transmission Date: 20160305
  Serious: Yes (Disabling, Congenital Anomaly, Other)
  Sender: FDA-Public Use
  Company Number: FR-GLAXOSMITHKLINE-FR2015GSK174283

PATIENT
  Age: 0 Year
  Sex: Female

DRUGS (1)
  1. LAMICTAL [Suspect]
     Active Substance: LAMOTRIGINE
     Indication: EPILEPSY
     Dosage: 250 MG, QD
     Route: 064
     Dates: start: 2012, end: 20130617

REACTIONS (3)
  - Foetal exposure during pregnancy [Unknown]
  - Psychomotor retardation [Not Recovered/Not Resolved]
  - Microcephaly [Not Recovered/Not Resolved]

NARRATIVE: CASE EVENT DATE: 2012
